FAERS Safety Report 6864058-2 (Version None)
Quarter: 2010Q3

REPORT INFORMATION
  Report Type: 
  Country: None (occurrence: None)
  Receive Date: 20100720
  Receipt Date: 20100713
  Transmission Date: 20110219
  Serious: Yes (Death)
  Sender: FDA-Public Use
  Company Number: RB-13005-2010

PATIENT
  Age: 55 Year
  Sex: Female

DRUGS (1)
  1. SUBOXONE [Suspect]

REACTIONS (1)
  - DEATH [None]
